FAERS Safety Report 15981431 (Version 2)
Quarter: 2019Q2

REPORT INFORMATION
  Report Type: Spontaneous
  Country: US (occurrence: US)
  Receive Date: 20190219
  Receipt Date: 20190401
  Transmission Date: 20190711
  Serious: Yes (Other)
  Sender: FDA-Public Use
  Company Number: US-BAYER-2019-031070

PATIENT
  Age: 87 Year
  Sex: Male
  Weight: 79 kg

DRUGS (5)
  1. TRIAMCINOLONE ACETONIDE. [Concomitant]
     Active Substance: TRIAMCINOLONE ACETONIDE
     Indication: RASH
     Dosage: UNK
  2. MIRALAX [Suspect]
     Active Substance: POLYETHYLENE GLYCOL 3350
     Indication: GASTROINTESTINAL DISORDER
     Dosage: 1 DF, QD
     Route: 048
     Dates: start: 201811
  3. ALKA-SELTZER EFFERVESCENT COLD [Suspect]
     Active Substance: ACETAMINOPHEN\CHLORPHENIRAMINE\DEXTROMETHORPHAN\PHENYLEPHRINE
     Indication: LICE INFESTATION
     Dosage: 1 DF
     Route: 048
     Dates: start: 1972
  4. BAYER LOW DOSE [Suspect]
     Active Substance: ASPIRIN
     Indication: PAIN
     Dosage: 1 DF
     Route: 048
     Dates: start: 1972
  5. SYNTHROID [Concomitant]
     Active Substance: LEVOTHYROXINE SODIUM
     Indication: THYROID DISORDER
     Dosage: UNK

REACTIONS (13)
  - Pleural effusion [None]
  - Rash erythematous [Recovering/Resolving]
  - Peripheral swelling [Recovering/Resolving]
  - Arthralgia [Recovering/Resolving]
  - Gastric haemorrhage [Recovered/Resolved]
  - Rash erythematous [Recovering/Resolving]
  - Loss of consciousness [Recovered/Resolved]
  - Dyspnoea [None]
  - Cardiac failure [None]
  - Renal impairment [None]
  - Product use in unapproved indication [None]
  - Incorrect product administration duration [Unknown]
  - Liver disorder [None]

NARRATIVE: CASE EVENT DATE: 1972
